FAERS Safety Report 9324749 (Version 1)
Quarter: 2013Q2

REPORT INFORMATION
  Report Type: Spontaneous
  Country: US (occurrence: None)
  Receive Date: 20130529
  Receipt Date: 20130529
  Transmission Date: 20140414
  Serious: Yes (Hospitalization)
  Sender: FDA-Public Use
  Company Number: 20130258

PATIENT
  Age: 49 Year
  Sex: Female

DRUGS (3)
  1. POTASSIUM PHOSPHATES [Suspect]
     Indication: HYPOPHOSPHATAEMIA
  2. CALCIUM [Suspect]
     Indication: HYPOCALCAEMIA
     Route: 048
  3. VITAMIN D [Suspect]
     Indication: HYPOCALCAEMIA
     Route: 048

REACTIONS (1)
  - Nephrocalcinosis [None]
